FAERS Safety Report 5375169-5 (Version None)
Quarter: 2007Q2

REPORT INFORMATION
  Report Type: 
  Country: None (occurrence: None)
  Receive Date: 20070629
  Receipt Date: 20060610
  Transmission Date: 20071010
  Serious: Yes (Hospitalization)
  Sender: FDA-Public Use
  Company Number: US-ASTRAZENECA-2006UW12535

PATIENT
  Age: 58 Year
  Sex: Female

DRUGS (2)
  1. TAMOXIFEN CITRATE [Suspect]
     Route: 048
  2. AROMASIN [Concomitant]

REACTIONS (1)
  - CEREBROVASCULAR ACCIDENT [None]
